FAERS Safety Report 13546802 (Version 1)
Quarter: 2017Q2

REPORT INFORMATION
  Report Type: Spontaneous
  Country: KZ (occurrence: KZ)
  Receive Date: 20170515
  Receipt Date: 20170515
  Transmission Date: 20170830
  Serious: Yes (Hospitalization, Other)
  Sender: FDA-Public Use
  Company Number: KZ-BAYER-2017-081721

PATIENT
  Age: 50 Year
  Sex: Female

DRUGS (10)
  1. TRENTAL [Concomitant]
     Active Substance: PENTOXIFYLLINE
     Route: 042
  2. LYSINE [Concomitant]
     Active Substance: LYSINE
     Dosage: UNK
  3. KLIMADYNON [Concomitant]
     Dosage: 1 DF, BID
     Dates: start: 20170412
  4. MIRENA [Suspect]
     Active Substance: LEVONORGESTREL
     Indication: MENORRHAGIA
  5. CITICOLINE SODIUM [Concomitant]
     Active Substance: CITICOLINE SODIUM
     Dosage: UNK
     Route: 042
     Dates: start: 20170418, end: 20170426
  6. MIRENA [Suspect]
     Active Substance: LEVONORGESTREL
     Indication: METRORRHAGIA
  7. EUTHYROX [Concomitant]
     Active Substance: LEVOTHYROXINE SODIUM
     Dosage: UNK
  8. CITICOLINE [Concomitant]
     Active Substance: CITICOLINE
  9. MIRENA [Suspect]
     Active Substance: LEVONORGESTREL
     Indication: CONTRACEPTION
     Dosage: UNK
     Route: 015
     Dates: end: 20170428
  10. MIRENA [Suspect]
     Active Substance: LEVONORGESTREL
     Indication: DYSMENORRHOEA

REACTIONS (4)
  - Adrenal adenoma [None]
  - Genital haemorrhage [Recovered/Resolved]
  - Blood pressure systolic increased [Recovering/Resolving]
  - Blood pressure systolic increased [Recovered/Resolved]

NARRATIVE: CASE EVENT DATE: 20170406
